FAERS Safety Report 20574428 (Version 4)
Quarter: 2023Q2

REPORT INFORMATION
  Report Type: Report from Study
  Country: FR (occurrence: FR)
  Receive Date: 20220309
  Receipt Date: 20230425
  Transmission Date: 20230722
  Serious: Yes (Other)
  Sender: FDA-Public Use
  Company Number: FR-GILEAD-2022-0572854

PATIENT
  Sex: Female
  Weight: 41 kg

DRUGS (3)
  1. SACITUZUMAB GOVITECAN-HZIY [Suspect]
     Active Substance: SACITUZUMAB GOVITECAN-HZIY
     Indication: Triple negative breast cancer
     Dosage: 10 MG/KG, C1, D1D8
     Route: 042
     Dates: start: 20211117, end: 20211124
  2. SACITUZUMAB GOVITECAN-HZIY [Suspect]
     Active Substance: SACITUZUMAB GOVITECAN-HZIY
     Dosage: 10 MG/KG, C2, D1D8
     Route: 042
     Dates: start: 20211208, end: 20211215
  3. SACITUZUMAB GOVITECAN-HZIY [Suspect]
     Active Substance: SACITUZUMAB GOVITECAN-HZIY
     Dosage: 10 MG/KG, C3, D1D8
     Route: 042
     Dates: start: 20211230, end: 20220105

REACTIONS (6)
  - Disease progression [Not Recovered/Not Resolved]
  - Mucosal inflammation [Unknown]
  - Constipation [Unknown]
  - Asthenia [Unknown]
  - Off label use [Unknown]
  - Drug ineffective [Not Recovered/Not Resolved]
